FAERS Safety Report 8532790-0 (Version None)
Quarter: 2012Q3

REPORT INFORMATION
  Report Type: 
  Country: None (occurrence: None)
  Receive Date: 20120724
  Receipt Date: 20120720
  Transmission Date: 20120928
  Serious: Yes (Other)
  Sender: FDA-Public Use
  Company Number: PHFR2012GB002947

PATIENT
  Sex: Male

DRUGS (3)
  1. SERTRALINE HYDROCHLORIDE [Concomitant]
     Indication: DEPRESSED MOOD
     Dosage: 100 MG, QD
  2. ATENOLOL [Concomitant]
     Indication: HYPERTENSION
     Dosage: 50 MG, QD
  3. CLOZARIL [Suspect]
     Indication: SCHIZOPHRENIA
     Dosage: 300 MG, UNK
     Route: 048
     Dates: start: 19940713

REACTIONS (2)
  - ABSCESS ORAL [None]
  - PLATELET COUNT DECREASED [None]
